FAERS Safety Report 8050265-2 (Version None)
Quarter: 2012Q1

REPORT INFORMATION
  Report Type: 
  Country: None (occurrence: None)
  Receive Date: 20120117
  Receipt Date: 20120111
  Transmission Date: 20120608
  Serious: Yes (Other)
  Sender: FDA-Public Use
  Company Number: ES-PFIZER INC-2012008090

PATIENT
  Age: 42 Year
  Sex: Male

DRUGS (3)
  1. HUMIRA [Concomitant]
     Indication: CROHN'S DISEASE
  2. VFEND [Suspect]
  3. CORTICOSTEROIDS [Concomitant]
     Indication: CROHN'S DISEASE

REACTIONS (4)
  - PAIN IN EXTREMITY [None]
  - SENSORY LOSS [None]
  - POLYNEUROPATHY [None]
  - BURNING SENSATION [None]
